FAERS Safety Report 12768995 (Version 1)
Quarter: 2016Q3

REPORT INFORMATION
  Report Type: Spontaneous
  Country: US (occurrence: US)
  Receive Date: 20160921
  Receipt Date: 20160921
  Transmission Date: 20161109
  Serious: No
  Sender: FDA-Public Use
  Company Number: US-JAZZ-2016-US-010360

PATIENT
  Age: 65 Year
  Sex: Female

DRUGS (43)
  1. XYREM [Suspect]
     Active Substance: SODIUM OXYBATE
     Dosage: 4.5 G, BID
     Route: 048
     Dates: start: 200709
  2. ATIVAN [Concomitant]
     Active Substance: LORAZEPAM
  3. GABAPENTIN. [Concomitant]
     Active Substance: GABAPENTIN
  4. PROPRANOLOL ER [Concomitant]
  5. MOTRIN IB [Concomitant]
     Active Substance: IBUPROFEN
  6. PREDNISONE. [Concomitant]
     Active Substance: PREDNISONE
  7. PRILOSEC [Concomitant]
     Active Substance: OMEPRAZOLE MAGNESIUM
  8. INDERAL LA [Concomitant]
     Active Substance: PROPRANOLOL HYDROCHLORIDE
  9. VITAMIN B6 [Concomitant]
     Active Substance: PYRIDOXINE HYDROCHLORIDE
  10. ASPIR EC [Concomitant]
  11. TYLENOL EXTRA STRENGTH [Concomitant]
     Active Substance: ACETAMINOPHEN
  12. WHEY PROTEIN ISOLATE [Concomitant]
  13. AMINOACETIC ACID [Concomitant]
     Active Substance: GLYCINE
  14. TRAZODONE [Concomitant]
     Active Substance: TRAZODONE HYDROCHLORIDE
  15. XYREM [Suspect]
     Active Substance: SODIUM OXYBATE
     Dosage: DOSE ADJUSTMENTS
     Route: 048
     Dates: start: 200511, end: 200709
  16. PROBIOTIC FORMULA [Concomitant]
  17. PEPCID AC [Concomitant]
     Active Substance: FAMOTIDINE
  18. CYANOCOBALAMINE [Concomitant]
     Active Substance: CYANOCOBALAMIN
  19. TAURINE [Concomitant]
     Active Substance: TAURINE
  20. XYREM [Suspect]
     Active Substance: SODIUM OXYBATE
     Indication: NARCOLEPSY
     Dosage: 2.25 G, BID
     Route: 048
     Dates: start: 200510, end: 200511
  21. CLARITIN [Concomitant]
     Active Substance: LORATADINE
  22. PAXIL [Concomitant]
     Active Substance: PAROXETINE HYDROCHLORIDE
  23. OXYCODONE AND ACETAMINOPHEN [Concomitant]
     Active Substance: ACETAMINOPHEN\OXYCODONE HYDROCHLORIDE
  24. TRYPTOPHAN [Concomitant]
     Active Substance: TRYPTOPHAN
  25. PHENOBARBITAL. [Concomitant]
     Active Substance: PHENOBARBITAL
  26. LOPRESSOR [Concomitant]
     Active Substance: METOPROLOL TARTRATE
  27. NYSTATIN. [Concomitant]
     Active Substance: NYSTATIN
  28. XYLOCAINE [Concomitant]
     Active Substance: LIDOCAINE HYDROCHLORIDE
  29. TYLENOL WITH CODEINE [Concomitant]
     Active Substance: ACETAMINOPHEN\CODEINE PHOSPHATE
  30. 5-HTP [Concomitant]
     Active Substance: OXITRIPTAN
  31. PROGESTERONE W/ESTROGENS [Concomitant]
  32. PYRIDOXINE HCL [Concomitant]
     Active Substance: PYRIDOXINE HYDROCHLORIDE
  33. PROZAC [Concomitant]
     Active Substance: FLUOXETINE HYDROCHLORIDE
  34. VISTARIL [Concomitant]
     Active Substance: HYDROXYZINE PAMOATE
  35. AFRIN [Concomitant]
     Active Substance: OXYMETAZOLINE
  36. KEFLEX [Concomitant]
     Active Substance: CEPHALEXIN
  37. VITAMIN C [Concomitant]
     Active Substance: ASCORBIC ACID
  38. ONDANSETRON ODT [Concomitant]
     Active Substance: ONDANSETRON
  39. PREMARIN [Concomitant]
     Active Substance: ESTROGENS, CONJUGATED
  40. PROTONIX DR [Concomitant]
  41. FLONASE ALLERGY RLF [Concomitant]
  42. CIPRO [Concomitant]
     Active Substance: CIPROFLOXACIN HYDROCHLORIDE
  43. UNASYN [Concomitant]
     Active Substance: AMPICILLIN SODIUM\SULBACTAM SODIUM

REACTIONS (3)
  - Constipation [Not Recovered/Not Resolved]
  - Iodine allergy [Unknown]
  - Computerised tomogram abnormal [Unknown]

NARRATIVE: CASE EVENT DATE: 201605
